FAERS Safety Report 8780198 (Version 1)
Quarter: 2012Q4

REPORT INFORMATION
  Report Type: Spontaneous
  Country: US (occurrence: None)
  Receive Date: 20120904
  Receipt Date: 20120904
  Transmission Date: 20130627
  Serious: Yes (Hospitalization)
  Sender: FDA-Public Use
  Company Number: None

PATIENT
  Age: 50 Year
  Sex: Female
  Weight: 98.1 kg

DRUGS (10)
  1. TEMOZOLOMIDE [Suspect]
     Indication: GBM
     Route: 048
     Dates: start: 20120820, end: 20120825
  2. BUPROPION [Concomitant]
  3. CALCIUM CARBONATE (TUMS ) [Concomitant]
  4. IBUPROFEN [Concomitant]
  5. LORAZAPAM [Concomitant]
  6. MULTIVITAMIN [Concomitant]
  7. OXYCODONE [Concomitant]
  8. SENNA [Concomitant]
  9. TRAZODONE [Concomitant]
  10. ZOFRAN [Concomitant]

REACTIONS (8)
  - Cholelithiasis [None]
  - Biliary dilatation [None]
  - Blood bilirubin increased [None]
  - Condition aggravated [None]
  - Cholelithiasis [None]
  - Nausea [None]
  - Vomiting [None]
  - Abdominal pain [None]
